FAERS Safety Report 4489399-8 (Version None)
Quarter: 2004Q4

REPORT INFORMATION
  Report Type: 
  Country: None (occurrence: None)
  Receive Date: 20041101
  Receipt Date: 20041019
  Transmission Date: 20050328
  Serious: Yes (Death, Hospitalization, Other)
  Sender: FDA-Public Use
  Company Number: US-ABBOTT-04P-163-0278027-00

PATIENT
  Age: 29 Year
  Sex: Female

DRUGS (11)
  1. VICODIN [Suspect]
     Indication: DRUG USE FOR UNKNOWN INDICATION
  2. CODEINE [Suspect]
     Indication: DRUG USE FOR UNKNOWN INDICATION
  3. PARACETAMOL [Suspect]
     Indication: DRUG USE FOR UNKNOWN INDICATION
  4. PHENYTOIN [Concomitant]
     Indication: DRUG USE FOR UNKNOWN INDICATION
  5. PHENOBARBITAL TAB [Concomitant]
     Indication: DRUG USE FOR UNKNOWN INDICATION
  6. LORAZEPAM [Concomitant]
     Indication: DRUG USE FOR UNKNOWN INDICATION
  7. AMITRIPTYLINE HCL [Concomitant]
     Indication: DRUG USE FOR UNKNOWN INDICATION
  8. CARISOPRODOL [Concomitant]
     Indication: DRUG USE FOR UNKNOWN INDICATION
  9. FUROSEMIDE [Concomitant]
     Indication: DRUG USE FOR UNKNOWN INDICATION
  10. VERAPAMIL [Concomitant]
     Indication: DRUG USE FOR UNKNOWN INDICATION
  11. NON-STEROIDAL ANTIINFLAMMATORY AGENT [Concomitant]
     Indication: DRUG USE FOR UNKNOWN INDICATION

REACTIONS (9)
  - BRAIN OEDEMA [None]
  - DEPRESSED LEVEL OF CONSCIOUSNESS [None]
  - DRUG TOXICITY [None]
  - GAIT DISTURBANCE [None]
  - HEPATIC FAILURE [None]
  - HYPOGLYCAEMIA [None]
  - HYPOTENSION [None]
  - LOSS OF CONSCIOUSNESS [None]
  - METABOLIC ACIDOSIS [None]
